FAERS Safety Report 4562390-9 (Version None)
Quarter: 2005Q1

REPORT INFORMATION
  Report Type: 
  Country: None (occurrence: None)
  Receive Date: 20050127
  Receipt Date: 20040120
  Transmission Date: 20050727
  Serious: No
  Sender: FDA-Public Use
  Company Number: US-BRISTOL-MYERS SQUIBB COMPANY-12483012

PATIENT
  Age: 36 Year
  Sex: Female
  Weight: 60 kg

DRUGS (1)
  1. KENALOG-10 [Suspect]
     Indication: DERMATITIS ALLERGIC
     Route: 030
     Dates: start: 20030620, end: 20030620

REACTIONS (2)
  - DRUG INEFFECTIVE [None]
  - FAT ATROPHY [None]
